FAERS Safety Report 8265970-2 (Version None)
Quarter: 2012Q2

REPORT INFORMATION
  Report Type: 
  Country: None (occurrence: None)
  Receive Date: 20120406
  Receipt Date: 20120404
  Transmission Date: 20120825
  Serious: Yes (Other)
  Sender: FDA-Public Use
  Company Number: US-BRISTOL-MYERS SQUIBB COMPANY-14829998

PATIENT

DRUGS (1)
  1. AMOXICILLIN [Suspect]
     Route: 064

REACTIONS (1)
  - BRADYCARDIA FOETAL [None]
